FAERS Safety Report 6129998-0 (Version None)
Quarter: 2009Q1

REPORT INFORMATION
  Report Type: 
  Country: None (occurrence: None)
  Receive Date: 20090324
  Receipt Date: 20090316
  Transmission Date: 20090719
  Serious: Yes (Death, Other)
  Sender: FDA-Public Use
  Company Number: US-BAYER-200915559NA

PATIENT
  Sex: Male

DRUGS (3)
  1. MAGNEVIST [Suspect]
     Indication: NUCLEAR MAGNETIC RESONANCE IMAGING
  2. OMNISCAN [Suspect]
     Indication: NUCLEAR MAGNETIC RESONANCE IMAGING
  3. PAIN MEDICATION [Concomitant]
     Indication: PAIN

REACTIONS (9)
  - ANXIETY [None]
  - ARTHROPATHY [None]
  - CARDIAC DISORDER [None]
  - DEFORMITY [None]
  - MOBILITY DECREASED [None]
  - NEPHROGENIC SYSTEMIC FIBROSIS [None]
  - PAIN [None]
  - RENAL CELL CARCINOMA [None]
  - RESPIRATORY DISORDER [None]
